FAERS Safety Report 16566931 (Version 2)
Quarter: 2019Q3

REPORT INFORMATION
  Report Type: Spontaneous
  Country: US (occurrence: US)
  Receive Date: 20190712
  Receipt Date: 20190723
  Transmission Date: 20191004
  Serious: No
  Sender: FDA-Public Use
  Company Number: US-BAUSCH-BL-2019-018607

PATIENT
  Age: 61 Year
  Sex: Male

DRUGS (3)
  1. BRYHALI [Suspect]
     Active Substance: HALOBETASOL PROPIONATE
     Indication: PRODUCT USE IN UNAPPROVED INDICATION
  2. HYDROCORTISONE. [Concomitant]
     Active Substance: HYDROCORTISONE
     Indication: PRODUCT USED FOR UNKNOWN INDICATION
  3. BRYHALI [Suspect]
     Active Substance: HALOBETASOL PROPIONATE
     Indication: INFLAMMATION
     Route: 061
     Dates: start: 20190618, end: 20190624

REACTIONS (4)
  - Erythema [Unknown]
  - Drug ineffective for unapproved indication [Unknown]
  - Hyperaesthesia [Unknown]
  - Product use in unapproved indication [Unknown]

NARRATIVE: CASE EVENT DATE: 201906
